FAERS Safety Report 9090225 (Version 1)
Quarter: 2013Q1

REPORT INFORMATION
  Report Type: Report from Study
  Country: US (occurrence: US)
  Receive Date: 20130201
  Receipt Date: 20130201
  Transmission Date: 20140127
  Serious: No
  Sender: FDA-Public Use
  Company Number: US-ABBOTT-12P-163-1020240-00

PATIENT
  Sex: Female
  Weight: 68.1 kg

DRUGS (12)
  1. HUMIRA [Suspect]
     Indication: RHEUMATOID ARTHRITIS
     Dosage: AT NIGHT BEFORE BED
     Dates: start: 201205
  2. PREDNISONE [Concomitant]
     Indication: RHEUMATOID ARTHRITIS
  3. BUSPIRONE [Concomitant]
     Indication: POST-TRAUMATIC STRESS DISORDER
  4. ARMOUR THYROID [Concomitant]
     Indication: AUTOIMMUNE THYROIDITIS
  5. TOPIRAMATE [Concomitant]
     Indication: MIGRAINE PROPHYLAXIS
  6. TOPIRAMATE [Concomitant]
     Indication: BIPOLAR DISORDER
  7. VENLAFAXINE [Concomitant]
     Indication: BIPOLAR DISORDER
     Dosage: ER
  8. ALEVE [Concomitant]
     Indication: RHEUMATOID ARTHRITIS
     Dosage: 2 A DAY
  9. IBUPROFEN [Concomitant]
     Indication: RHEUMATOID ARTHRITIS
     Dosage: 2 A DAY
  10. FIORICIT [Concomitant]
     Indication: PAIN
  11. UNKNOWN PAIN MEDICATION [Concomitant]
     Indication: PRODUCT USED FOR UNKNOWN INDICATION
  12. NEXIUM [Concomitant]
     Indication: GASTROOESOPHAGEAL REFLUX DISEASE

REACTIONS (6)
  - Burning sensation [Unknown]
  - Fatigue [Unknown]
  - Somnolence [Unknown]
  - Incorrect route of drug administration [Unknown]
  - Incorrect dose administered [Unknown]
  - Injection site bruising [Not Recovered/Not Resolved]
